FAERS Safety Report 5528496-2 (Version None)
Quarter: 2007Q4

REPORT INFORMATION
  Report Type: 
  Country: None (occurrence: None)
  Receive Date: 20071128
  Receipt Date: 20071121
  Transmission Date: 20080405
  Serious: Yes (Death, Life-Threatening, Hospitalization)
  Sender: FDA-Public Use
  Company Number: FR-MERCK-0709FRA00088

PATIENT
  Age: 57 Year
  Sex: Male

DRUGS (13)
  1. VYTORIN [Suspect]
     Indication: HYPERCHOLESTEROLAEMIA
     Route: 048
     Dates: start: 20070715, end: 20070925
  2. CARBIMAZOLE [Concomitant]
     Indication: HYPERTHYROIDISM
     Route: 048
     Dates: start: 20070915, end: 20070921
  3. CYCLOSPORINE [Suspect]
     Indication: RENAL TRANSPLANT
     Route: 048
     Dates: start: 19960101, end: 20070925
  4. CYCLOSPORINE [Suspect]
     Route: 065
     Dates: start: 20070925, end: 20071006
  5. CYCLOSPORINE [Suspect]
     Route: 065
     Dates: start: 20071006, end: 20071007
  6. MYCOPHENOLATE MOFETIL [Concomitant]
     Indication: RENAL TRANSPLANT
     Route: 048
  7. METHYLPREDNISOLONE [Concomitant]
     Indication: RENAL TRANSPLANT
     Route: 048
  8. ASPIRIN LYSINE [Concomitant]
     Indication: CARDIOVASCULAR EVENT PROPHYLAXIS
     Route: 048
  9. PERINDOPRIL ARGININE [Concomitant]
     Indication: CORONARY ARTERY DISEASE
     Route: 048
     Dates: end: 20070925
  10. FLUINDIONE [Concomitant]
     Indication: ARRHYTHMIA
     Route: 048
     Dates: end: 20070925
  11. FUROSEMIDE [Concomitant]
     Route: 048
     Dates: end: 20070928
  12. OMEPRAZOLE SODIUM [Concomitant]
     Route: 048
  13. BISOPROLOL FUMARATE [Concomitant]
     Route: 048

REACTIONS (4)
  - DRUG INTERACTION [None]
  - PULMONARY EMBOLISM [None]
  - RENAL FAILURE ACUTE [None]
  - RHABDOMYOLYSIS [None]
